FAERS Safety Report 17824818 (Version 1)
Quarter: 2020Q2

REPORT INFORMATION
  Report Type: Spontaneous
  Country: US (occurrence: US)
  Receive Date: 20200526
  Receipt Date: 20200526
  Transmission Date: 20200714
  Serious: Yes (Death)
  Sender: FDA-Public Use
  Company Number: None

PATIENT
  Age: 50 Year
  Sex: Female

DRUGS (5)
  1. AFINITOR [Concomitant]
     Active Substance: EVEROLIMUS
  2. CAPECITABINE. [Suspect]
     Active Substance: CAPECITABINE
     Indication: BREAST CANCER
     Route: 048
     Dates: start: 20200312, end: 20200513
  3. ETOPOSIDE 50 MG CAP [Concomitant]
  4. LUPRON DEPOT-ADULT 3.75 MG [Concomitant]
  5. XGEVA [Suspect]
     Active Substance: DENOSUMAB
     Indication: BONE CANCER
     Dosage: ?          OTHER FREQUENCY:ONCE A MONTH;?
     Route: 058
     Dates: start: 20171205, end: 20200513

REACTIONS (1)
  - Death [None]

NARRATIVE: CASE EVENT DATE: 20200513
